FAERS Safety Report 5744081-1 (Version None)
Quarter: 2008Q2

REPORT INFORMATION
  Report Type: 
  Country: None (occurrence: None)
  Receive Date: 20080516
  Receipt Date: 20080516
  Transmission Date: 20081010
  Serious: No
  Sender: FDA-Public Use
  Company Number: None

PATIENT
  Sex: Male
  Weight: 89.91 kg

DRUGS (2)
  1. CARBOPLATIN [Suspect]
     Dosage: 403.53 MG
     Dates: end: 20080421
  2. GEMCITABINE HCL [Suspect]
     Dosage: 4300 MG
     Dates: end: 20080421

REACTIONS (4)
  - CONTUSION [None]
  - EPISTAXIS [None]
  - NEUTROPENIA [None]
  - WHITE BLOOD CELL COUNT ABNORMAL [None]
